FAERS Safety Report 16430805 (Version 1)
Quarter: 2019Q3

REPORT INFORMATION
  Report Type: Spontaneous
  Country: US (occurrence: US)
  Receive Date: 20190613
  Receipt Date: 20190613
  Transmission Date: 20191004
  Serious: Yes (Hospitalization)
  Sender: FDA-Public Use
  Company Number: None

PATIENT
  Sex: Female

DRUGS (12)
  1. ORENCIA [Suspect]
     Active Substance: ABATACEPT
     Indication: RHEUMATOID ARTHRITIS
     Dosage: ?          OTHER FREQUENCY:ONCE A WEEK;?
     Route: 058
  2. SULFASALAZINE 500MG TABLETS [Concomitant]
     Dates: start: 20190609
  3. LYRICA 75MG CAPSULES [Concomitant]
     Dates: start: 20190609
  4. FERREX 150MG CAPSULES [Concomitant]
     Dates: start: 20190529
  5. RANITIDINE 150MG TABLETS [Concomitant]
     Dates: start: 20190523
  6. CALCIUM 500MG TABLETS [Concomitant]
     Dates: start: 20110517
  7. AMITRIPTYLINE 50MG TABLETS [Concomitant]
     Dates: start: 20190523
  8. NAPROXEN 500MG TABLETS [Concomitant]
     Dates: start: 20190319
  9. ALPRAZOLAM 0.25MG TABLETS [Concomitant]
     Active Substance: ALPRAZOLAM
     Dates: start: 20190514
  10. HYDROCODONE/APAP 5-325MG TABLETS [Concomitant]
     Dates: start: 20190604
  11. HYDROXYCHLOROQUINE 200MG TABLETS [Concomitant]
     Active Substance: HYDROXYCHLOROQUINE
     Dates: start: 20190403
  12. CYCLOBENZAPRINE 10MG TABLETS [Concomitant]
     Active Substance: CYCLOBENZAPRINE HYDROCHLORIDE
     Dates: start: 20190419

REACTIONS (2)
  - Hospitalisation [None]
  - Therapy cessation [None]
